FAERS Safety Report 11316824 (Version 2)
Quarter: 2015Q3

REPORT INFORMATION
  Report Type: Report from Study
  Country: US (occurrence: US)
  Receive Date: 20150728
  Receipt Date: 20150814
  Transmission Date: 20151125
  Serious: Yes (Death)
  Sender: FDA-Public Use
  Company Number: US-BAYER-2015-388463

PATIENT
  Age: 69 Year
  Sex: Male
  Weight: 68 kg

DRUGS (2)
  1. REGORAFENIB [Suspect]
     Active Substance: REGORAFENIB
     Indication: BASAL CELL CARCINOMA
     Dosage: 160 MG, QD
     Route: 048
     Dates: start: 20150622, end: 20150719
  2. ADDITIONAL STUDY MEDICATION [Suspect]
     Active Substance: UNSPECIFIED INGREDIENT
     Indication: BASAL CELL CARCINOMA
     Dosage: DAILY DOSE 250 MG/M2
     Route: 042
     Dates: start: 20150629, end: 20150720

REACTIONS (1)
  - Basal cell carcinoma [Fatal]

NARRATIVE: CASE EVENT DATE: 20150724
